FAERS Safety Report 9678698 (Version 1)
Quarter: 2013Q4

REPORT INFORMATION
  Report Type: Spontaneous
  Country: US (occurrence: US)
  Receive Date: 20131108
  Receipt Date: 20131108
  Transmission Date: 20140711
  Serious: No
  Sender: FDA-Public Use
  Company Number: US-PFIZER INC-2013315345

PATIENT
  Age: 40 Year
  Sex: Male
  Weight: 77.1 kg

DRUGS (4)
  1. AZITHROMYCIN [Suspect]
     Indication: SKIN INFECTION
     Dosage: UNK
     Route: 048
  2. AZITHROMYCIN [Suspect]
     Indication: SKIN INFECTION
     Dosage: UNK
     Route: 048
  3. AZITHROMYCIN [Suspect]
     Indication: SKIN INFECTION
     Dosage: 250 MG, 1X/DAY
     Route: 048
     Dates: start: 201307, end: 2013
  4. AZITHROMYCIN [Suspect]
     Indication: SKIN INFECTION

REACTIONS (2)
  - Blood cholesterol abnormal [Unknown]
  - Tendon rupture [Unknown]
